FAERS Safety Report 7931004-X (Version None)
Quarter: 2011Q4

REPORT INFORMATION
  Report Type: 
  Country: None (occurrence: None)
  Receive Date: 20111121
  Receipt Date: 20111111
  Transmission Date: 20120403
  Serious: Yes (Other)
  Sender: FDA-Public Use
  Company Number: CO-JNJFOC-20111105512

PATIENT
  Age: 58 Year
  Sex: Male

DRUGS (3)
  1. REMICADE [Suspect]
     Route: 042
     Dates: start: 20111109
  2. DEFLAZACORT [Concomitant]
     Route: 065
  3. REMICADE [Suspect]
     Indication: PEMPHIGUS
     Route: 042

REACTIONS (3)
  - MUSCLE SPASMS [None]
  - RESPIRATORY DISTRESS [None]
  - INFUSION RELATED REACTION [None]
